FAERS Safety Report 5159189-1 (Version None)
Quarter: 2006Q4

REPORT INFORMATION
  Report Type: 
  Country: None (occurrence: None)
  Receive Date: 20061120
  Receipt Date: 20061103
  Transmission Date: 20070319
  Serious: Yes (Death, Hospitalization)
  Sender: FDA-Public Use
  Company Number: RU-2006-033656

PATIENT
  Sex: Female

DRUGS (1)
  1. BETAFERON  (INTERFERON BETA -1B)INJECTION, 250?G [Suspect]
     Indication: MULTIPLE SCLEROSIS
     Dosage: EVERY 2D, SUCUTANEOUS
     Route: 058

REACTIONS (1)
  - SEPSIS [None]
